FAERS Safety Report 24674447 (Version 2)
Quarter: 2024Q4

REPORT INFORMATION
  Report Type: Spontaneous
  Country: US (occurrence: US)
  Receive Date: 20241128
  Receipt Date: 20241204
  Transmission Date: 20250114
  Serious: Yes (Death, Life-Threatening, Hospitalization)
  Sender: MACLEODS
  Company Number: US-MACLEODS PHARMA-MAC2024050418

PATIENT

DRUGS (5)
  1. OLANZAPINE [Suspect]
     Active Substance: OLANZAPINE
     Indication: Delirium
     Route: 065
  2. ACETAMINOPHEN [Concomitant]
     Active Substance: ACETAMINOPHEN
     Indication: Product used for unknown indication
     Route: 065
  3. LORAZEPAM [Concomitant]
     Active Substance: LORAZEPAM
     Indication: Product used for unknown indication
     Route: 065
  4. MORPHINE [Concomitant]
     Active Substance: MORPHINE
     Indication: Product used for unknown indication
     Route: 065
  5. MIDAZOLAM [Concomitant]
     Active Substance: MIDAZOLAM
     Indication: Product used for unknown indication
     Route: 065

REACTIONS (23)
  - Neuroleptic malignant syndrome [Fatal]
  - Brain oedema [Fatal]
  - Myocardial infarction [Fatal]
  - Anuria [Fatal]
  - Hypoxia [Fatal]
  - Acidosis [Fatal]
  - Pulmonary oedema [Fatal]
  - Generalised oedema [Fatal]
  - Acute kidney injury [Fatal]
  - Multiple organ dysfunction syndrome [Fatal]
  - Lactic acidosis [Fatal]
  - Disseminated intravascular coagulation [Fatal]
  - Clonus [Unknown]
  - Shock [Fatal]
  - Hepatic function abnormal [Fatal]
  - Brain injury [Fatal]
  - Acute myocardial infarction [Fatal]
  - Brain hypoxia [Fatal]
  - Autonomic nervous system imbalance [Fatal]
  - Cerebral infarction [Fatal]
  - Multiple organ dysfunction syndrome [Fatal]
  - Hypertransaminasaemia [Unknown]
  - Hypertonia [Unknown]
